FAERS Safety Report 7102776-1 (Version None)
Quarter: 2010Q4

REPORT INFORMATION
  Report Type: 
  Country: None (occurrence: None)
  Receive Date: 20101115
  Receipt Date: 20101102
  Transmission Date: 20110411
  Serious: Yes (Hospitalization)
  Sender: FDA-Public Use
  Company Number: GB-GENENTECH-309424

PATIENT
  Sex: Female

DRUGS (5)
  1. RANIBIZUMAB [Suspect]
     Indication: PRODUCT USED FOR UNKNOWN INDICATION
     Dosage: 0.5 MG, UNK
     Route: 031
     Dates: start: 20090604
  2. RANIBIZUMAB [Suspect]
     Dosage: 0.5 MG, UNK
     Route: 031
  3. RANIBIZUMAB [Suspect]
     Dosage: 0.5 MG, UNK
     Route: 031
  4. RANIBIZUMAB [Suspect]
     Dosage: 0.5 MG, UNK
     Route: 031
  5. RANIBIZUMAB [Suspect]
     Dosage: 0.5 MG, UNK
     Route: 031

REACTIONS (1)
  - THROMBOSIS [None]
